FAERS Safety Report 4480940-8 (Version None)
Quarter: 2004Q4

REPORT INFORMATION
  Report Type: 
  Country: None (occurrence: None)
  Receive Date: 20041020
  Receipt Date: 20041020
  Transmission Date: 20050328
  Serious: No
  Sender: FDA-Public Use
  Company Number: None

PATIENT
  Age: 74 Year
  Sex: Male
  Weight: 100.2449 kg

DRUGS (5)
  1. BEXTRA [Suspect]
     Indication: INFLAMMATION
     Dosage: 1 TABLET DAILY (AS PHYSICIAN)
     Dates: start: 20030422, end: 20040401
  2. BEXTRA [Suspect]
     Indication: PAIN
     Dosage: 1 TABLET DAILY (AS PHYSICIAN)
     Dates: start: 20030422, end: 20040401
  3. TRICOR [Concomitant]
  4. ZETIA [Concomitant]
  5. NIASPAN ER [Concomitant]

REACTIONS (1)
  - RENAL FAILURE [None]
